FAERS Safety Report 11982845 (Version 1)
Quarter: 2016Q1

REPORT INFORMATION
  Report Type: Spontaneous
  Country: US (occurrence: None)
  Receive Date: 20160129
  Receipt Date: 20160129
  Transmission Date: 20160526
  Serious: Yes (Hospitalization)
  Sender: FDA-Public Use
  Company Number: None

PATIENT
  Age: 54 Year
  Sex: Female

DRUGS (14)
  1. LIDODERM [Concomitant]
     Active Substance: LIDOCAINE
  2. TYKERB [Suspect]
     Active Substance: LAPATINIB DITOSYLATE
     Indication: BREAST CANCER
     Route: 048
     Dates: start: 200912
  3. LIDOCAINE. [Concomitant]
     Active Substance: LIDOCAINE
  4. VAMCOMYCIN [Concomitant]
     Active Substance: VANCOMYCIN
  5. PROPO-N/APAP [Concomitant]
  6. LORAZEPAM. [Concomitant]
     Active Substance: LORAZEPAM
  7. TRAMADOL HYDROCHLORIDE AND ACETAMINOPHEN [Concomitant]
     Active Substance: ACETAMINOPHEN\TRAMADOL HYDROCHLORIDE
  8. LEVAQUIN [Concomitant]
     Active Substance: LEVOFLOXACIN
  9. CEPHALEXIN. [Concomitant]
     Active Substance: CEPHALEXIN
  10. QPAP INFANTS DROPS [Concomitant]
     Active Substance: ACETAMINOPHEN
  11. NAPROXEN. [Concomitant]
     Active Substance: NAPROXEN
  12. LITHOBID [Concomitant]
     Active Substance: LITHIUM CARBONATE
  13. DIPHEN/ATROP [Concomitant]
     Active Substance: ATROPINE SULFATE\DIPHENOXYLATE
  14. LEVOFLOXACIN. [Concomitant]
     Active Substance: LEVOFLOXACIN

REACTIONS (2)
  - Infection [None]
  - Drug dose omission [None]

NARRATIVE: CASE EVENT DATE: 20151211
